FAERS Safety Report 16644797 (Version 2)
Quarter: 2019Q3

REPORT INFORMATION
  Report Type: Report from Study
  Country: None (occurrence: US)
  Receive Date: 20190729
  Receipt Date: 20190806
  Transmission Date: 20191004
  Serious: Yes (Hospitalization, Other)
  Sender: FDA-Public Use
  Company Number: US-ABBVIE-19K-163-2868668-00

PATIENT
  Age: 59 Year
  Sex: Female

DRUGS (1)
  1. HUMIRA [Suspect]
     Active Substance: ADALIMUMAB
     Indication: RHEUMATOID ARTHRITIS
     Route: 058
     Dates: start: 2017, end: 20190713

REACTIONS (8)
  - Organ failure [Recovering/Resolving]
  - Concussion [Not Recovered/Not Resolved]
  - Lower limb fracture [Recovering/Resolving]
  - Road traffic accident [Recovered/Resolved]
  - Internal haemorrhage [Recovering/Resolving]
  - Lower limb fracture [Not Recovered/Not Resolved]
  - Rib fracture [Recovering/Resolving]
  - Clavicle fracture [Not Recovered/Not Resolved]

NARRATIVE: CASE EVENT DATE: 201907
